FAERS Safety Report 17953459 (Version 2)
Quarter: 2020Q2

REPORT INFORMATION
  Report Type: Spontaneous
  Country: DK (occurrence: DK)
  Receive Date: 20200628
  Receipt Date: 20200630
  Transmission Date: 20200714
  Serious: Yes (Hospitalization)
  Sender: FDA-Public Use
  Company Number: DK-JNJFOC-20200629246

PATIENT
  Age: 62 Year
  Sex: Male

DRUGS (6)
  1. DICILLIN                           /00063302/ [Suspect]
     Active Substance: DICLOXACILLIN SODIUM
     Indication: LOCALISED INFECTION
     Dosage: STRENGTH: 500 MG
     Route: 048
     Dates: start: 20200424, end: 20200512
  2. AMOROLFINE [Concomitant]
     Active Substance: AMOROLFINE
     Indication: ONYCHOMYCOSIS
     Dosage: STRENGTH: 5% TIME INTERVALL: 1
     Route: 048
     Dates: start: 20200423
  3. PARACETAMOL [Concomitant]
     Active Substance: ACETAMINOPHEN
     Indication: PAIN
     Dosage: STRENGTH: 500 MG: AS REQUIRED.?ADDITIONAL INFO: START DATE IS UNKNOWN, BUT ATLEAST SINCE AUGUST 2018
     Route: 048
  4. IPREN TABLETS [Suspect]
     Active Substance: IBUPROFEN
     Indication: TENSION HEADACHE
     Dosage: DOSAGE: 200 MG X 4-5 PER WEEK. STRENGTH: 200 MG
     Route: 048
     Dates: start: 20200305, end: 20200512
  5. TERBINAFINE. [Concomitant]
     Active Substance: TERBINAFINE
     Indication: FUNGAL INFECTION
     Dosage: STRENGTH: 250 MG
     Route: 048
     Dates: start: 20200423, end: 20200512
  6. LOSARTAN AND HYDROCHLOROTHIAZIDE [Concomitant]
     Active Substance: HYDROCHLOROTHIAZIDE\LOSARTAN POTASSIUM
     Indication: HYPERTENSION
     Dosage: STRENGTH: 100+25 MG.?ADDITIONAL INFO: START DATE IS UNKNOWN, BUT AT LEAST SINCE AUGUST 2018
     Route: 048

REACTIONS (3)
  - Acute kidney injury [Recovering/Resolving]
  - Tubulointerstitial nephritis [Recovering/Resolving]
  - Blood creatinine increased [Unknown]

NARRATIVE: CASE EVENT DATE: 202005
